FAERS Safety Report 14134479 (Version 2)
Quarter: 2017Q4

REPORT INFORMATION
  Report Type: Spontaneous
  Country: US (occurrence: US)
  Receive Date: 20171027
  Receipt Date: 20171207
  Transmission Date: 20180321
  Serious: Yes (Hospitalization)
  Sender: FDA-Public Use
  Company Number: US-ASTRAZENECA-2017SF08822

PATIENT
  Sex: Female
  Weight: 63.5 kg

DRUGS (6)
  1. LISINOPRIL. [Suspect]
     Active Substance: LISINOPRIL
     Indication: HYPERTENSION
     Route: 048
  2. TYLENOL [Concomitant]
     Active Substance: ACETAMINOPHEN
     Dosage: EXTRA STRENGTH TYLENOL
     Route: 065
  3. COMBIVENT [Concomitant]
     Active Substance: ALBUTEROL SULFATE\IPRATROPIUM BROMIDE
     Route: 055
  4. TEMAZEPAM. [Concomitant]
     Active Substance: TEMAZEPAM
     Indication: SLEEP DISORDER
     Route: 048
  5. SYMBICORT [Suspect]
     Active Substance: BUDESONIDE\FORMOTEROL FUMARATE DIHYDRATE
     Indication: CHRONIC OBSTRUCTIVE PULMONARY DISEASE
     Dosage: 160/4.5 UG, TWO INHALATIONS TWO TIMES A DAY
     Route: 055
     Dates: start: 2012
  6. ATROVENT [Concomitant]
     Active Substance: IPRATROPIUM BROMIDE
     Route: 055

REACTIONS (23)
  - Photophobia [Unknown]
  - Vision blurred [Unknown]
  - Tooth infection [Unknown]
  - Post-traumatic stress disorder [Unknown]
  - Exostosis [Unknown]
  - Gait disturbance [Unknown]
  - Sleep disorder [Unknown]
  - Chronic obstructive pulmonary disease [Unknown]
  - Glucose tolerance impaired [Unknown]
  - Intervertebral disc protrusion [Unknown]
  - Dyspnoea [Unknown]
  - Scoliosis [Unknown]
  - Hand deformity [Unknown]
  - Ligament rupture [Unknown]
  - Pneumonia [Unknown]
  - Visual impairment [Unknown]
  - Night blindness [Unknown]
  - Intentional product misuse [Unknown]
  - Circumstance or information capable of leading to medication error [Unknown]
  - Device malfunction [Unknown]
  - Wrong technique in product usage process [Unknown]
  - Huntington^s disease [Unknown]
  - Blood pressure fluctuation [Unknown]
